FAERS Safety Report 24284066 (Version 1)
Quarter: 2024Q3

REPORT INFORMATION
  Report Type: Spontaneous
  Country: BR (occurrence: BR)
  Receive Date: 20240905
  Receipt Date: 20240905
  Transmission Date: 20241017
  Serious: Yes (Other)
  Sender: BIOGEN
  Company Number: BR-BIOGEN-2024BI01280651

PATIENT
  Sex: Female

DRUGS (1)
  1. TECFIDERA [Suspect]
     Active Substance: DIMETHYL FUMARATE
     Indication: Multiple sclerosis
     Route: 050

REACTIONS (3)
  - Blindness unilateral [Not Recovered/Not Resolved]
  - Confusional state [Unknown]
  - Memory impairment [Unknown]
